FAERS Safety Report 4824327-4 (Version None)
Quarter: 2005Q4

REPORT INFORMATION
  Report Type: 
  Country: None (occurrence: None)
  Receive Date: 20051108
  Receipt Date: 20051020
  Transmission Date: 20060501
  Serious: Yes (Hospitalization, Other)
  Sender: FDA-Public Use
  Company Number: USA0510111508

PATIENT
  Age: 83 Year
  Sex: Female

DRUGS (3)
  1. FORTEO [Suspect]
     Dates: start: 20050729
  2. SYNTHROID [Concomitant]
  3. PLAVIX [Concomitant]

REACTIONS (3)
  - HIP SURGERY [None]
  - PHARMACEUTICAL PRODUCT COMPLAINT [None]
  - SURGICAL PROCEDURE REPEATED [None]
